FAERS Safety Report 10449861 (Version 2)
Quarter: 2014Q3

REPORT INFORMATION
  Report Type: Report from Study
  Country: US (occurrence: US)
  Receive Date: 20140912
  Receipt Date: 20140912
  Transmission Date: 20150326
  Serious: Yes (Hospitalization)
  Sender: FDA-Public Use
  Company Number: US-PURDUE-USA-2014-0115953

PATIENT
  Age: 43 Year
  Sex: Female

DRUGS (4)
  1. OXYCONTIN [Suspect]
     Active Substance: OXYCODONE HYDROCHLORIDE
     Indication: PAIN
     Dosage: 80 MG, Q8H
     Route: 048
     Dates: start: 20140613
  2. OXYCODONE [Suspect]
     Active Substance: OXYCODONE
     Indication: PRODUCT USED FOR UNKNOWN INDICATION
     Dosage: 30 MG, SEE TEXT
     Dates: end: 20140721
  3. OXYCONTIN [Suspect]
     Active Substance: OXYCODONE HYDROCHLORIDE
     Dosage: UNK
     Dates: start: 200912
  4. OXYCONTIN [Suspect]
     Active Substance: OXYCODONE HYDROCHLORIDE
     Indication: INTERVERTEBRAL DISC DEGENERATION
     Dosage: 80 MG, Q8H
     Route: 048
     Dates: start: 20140730

REACTIONS (5)
  - Diarrhoea [Unknown]
  - Feeling of body temperature change [Unknown]
  - Nephrolithiasis [Recovered/Resolved]
  - Sneezing [Unknown]
  - Nausea [Unknown]

NARRATIVE: CASE EVENT DATE: 20140722
